FAERS Safety Report 21686441 (Version 3)
Quarter: 2023Q1

REPORT INFORMATION
  Report Type: Report from Study
  Country: AU (occurrence: AU)
  Receive Date: 20221206
  Receipt Date: 20230220
  Transmission Date: 20230418
  Serious: Yes (Hospitalization)
  Sender: FDA-Public Use
  Company Number: AU-002147023-NVSC2022AU277099

PATIENT
  Age: 77 Year
  Sex: Male
  Weight: 130.5 kg

DRUGS (14)
  1. ASCIMINIB [Suspect]
     Active Substance: ASCIMINIB
     Indication: Chronic myeloid leukaemia
     Dosage: 80 MG, QD
     Route: 048
     Dates: start: 20211217, end: 20221125
  2. ASCIMINIB [Suspect]
     Active Substance: ASCIMINIB
     Dosage: 80 MG, QD
     Route: 048
     Dates: start: 20221205
  3. LERCANIDIPINE HYDROCHLORIDE [Concomitant]
     Active Substance: LERCANIDIPINE HYDROCHLORIDE
     Indication: Hypertension
     Dosage: UNK
     Route: 065
     Dates: start: 200107
  4. FML [Concomitant]
     Active Substance: FLUOROMETHOLONE
     Indication: Dry eye
     Dosage: UNK
     Route: 065
     Dates: start: 20220218
  5. MELATONIN [Concomitant]
     Active Substance: MELATONIN
     Indication: Insomnia
     Dosage: UNK
     Route: 065
     Dates: start: 20220429
  6. TESTOSTERONE [Concomitant]
     Active Substance: TESTOSTERONE
     Indication: Primary hypogonadism
     Dosage: UNK
     Route: 065
     Dates: start: 20090101
  7. XARELTO [Concomitant]
     Active Substance: RIVAROXABAN
     Indication: Atrial fibrillation
     Dosage: UNK
     Route: 065
     Dates: start: 20221126
  8. HYDROCHLOROTHIAZIDE\TELMISARTAN [Concomitant]
     Active Substance: HYDROCHLOROTHIAZIDE\TELMISARTAN
     Indication: Hypertension
     Dosage: UNK
     Route: 065
     Dates: start: 20221126
  9. DOCUSATE SODIUM\SENNOSIDES A AND B [Concomitant]
     Active Substance: DOCUSATE SODIUM\SENNOSIDES A AND B
     Indication: Constipation
     Dosage: UNK
     Route: 065
     Dates: start: 20221126
  10. DIGOXIN [Concomitant]
     Active Substance: DIGOXIN
     Indication: Atrial fibrillation
     Dosage: UNK
     Route: 065
     Dates: start: 201007
  11. LYRICA [Concomitant]
     Active Substance: PREGABALIN
     Indication: Sciatica
     Dosage: UNK
     Route: 065
     Dates: start: 200907
  12. PANADOL [Concomitant]
     Active Substance: ACETAMINOPHEN
     Indication: Osteoarthritis
     Dosage: UNK
     Route: 065
     Dates: start: 201007
  13. ALLOPURINOL [Concomitant]
     Active Substance: ALLOPURINOL
     Indication: Gastritis prophylaxis
     Dosage: UNK
     Route: 065
     Dates: start: 201907
  14. LIPITOR [Concomitant]
     Active Substance: ATORVASTATIN CALCIUM
     Indication: Blood cholesterol increased
     Dosage: UNK
     Route: 065
     Dates: start: 201006

REACTIONS (4)
  - Abdominal pain [Recovered/Resolved]
  - Gastritis [Recovered/Resolved]
  - Pyrexia [Recovered/Resolved]
  - Pancreatitis [Recovered/Resolved]

NARRATIVE: CASE EVENT DATE: 20221126
